FAERS Safety Report 23899081 (Version 1)
Quarter: 2024Q2

REPORT INFORMATION
  Report Type: Spontaneous
  Country: CA (occurrence: CA)
  Receive Date: 20240526
  Receipt Date: 20240526
  Transmission Date: 20240715
  Serious: Yes (Death, Life-Threatening, Hospitalization, Other)
  Sender: FDA-Public Use
  Company Number: CA-HALEON-2174945

PATIENT
  Age: 72 Year
  Sex: Female
  Weight: 61 kg

DRUGS (51)
  1. FLUTICASONE [Suspect]
     Active Substance: FLUTICASONE
     Indication: Product used for unknown indication
     Route: 065
  2. FLUTICASONE [Suspect]
     Active Substance: FLUTICASONE
     Dosage: INTRA NASAL
     Route: 045
  3. FLUTICASONE [Suspect]
     Active Substance: FLUTICASONE
     Dosage: INTRA NASAL, 1 EVERY 0.5 DAYS
     Route: 055
  4. LAMOTRIGINE [Suspect]
     Active Substance: LAMOTRIGINE
     Indication: Product used for unknown indication
     Route: 048
  5. LAMOTRIGINE [Suspect]
     Active Substance: LAMOTRIGINE
     Route: 065
  6. LAMOTRIGINE [Suspect]
     Active Substance: LAMOTRIGINE
     Route: 048
  7. LAMOTRIGINE [Suspect]
     Active Substance: LAMOTRIGINE
     Route: 065
  8. BENZTROPINE [Suspect]
     Active Substance: BENZTROPINE
     Indication: Product used for unknown indication
     Route: 065
  9. BENZTROPINE [Suspect]
     Active Substance: BENZTROPINE
     Dosage: 1 EVERY 0.5 DAYS
     Route: 065
  10. BISACODYL [Suspect]
     Active Substance: BISACODYL
     Indication: Product used for unknown indication
     Route: 048
  11. BISACODYL [Suspect]
     Active Substance: BISACODYL
     Route: 048
  12. BUPROPION [Suspect]
     Active Substance: BUPROPION
     Indication: Product used for unknown indication
     Route: 065
  13. BUPROPION [Suspect]
     Active Substance: BUPROPION
     Route: 048
  14. BUPROPION [Suspect]
     Active Substance: BUPROPION
     Route: 065
  15. BUPROPION [Suspect]
     Active Substance: BUPROPION
     Route: 048
  16. CLONAZEPAM [Suspect]
     Active Substance: CLONAZEPAM
     Indication: Product used for unknown indication
     Route: 048
  17. CLONAZEPAM [Suspect]
     Active Substance: CLONAZEPAM
     Route: 065
  18. CLONAZEPAM [Suspect]
     Active Substance: CLONAZEPAM
     Route: 065
  19. CLONAZEPAM [Suspect]
     Active Substance: CLONAZEPAM
     Route: 048
  20. FLOVENT HFA [Suspect]
     Active Substance: FLUTICASONE PROPIONATE
     Indication: Product used for unknown indication
     Dosage: 1 EVERY 0.5 DAYS
     Route: 055
  21. FLOVENT HFA [Suspect]
     Active Substance: FLUTICASONE PROPIONATE
     Dosage: 1 EVERY 0.5 DAYS
     Route: 065
  22. FLOVENT HFA [Suspect]
     Active Substance: FLUTICASONE PROPIONATE
     Dosage: METERED-DOSE (AEROSOL)
     Route: 055
  23. LANSOPRAZOLE [Suspect]
     Active Substance: LANSOPRAZOLE
     Indication: Product used for unknown indication
     Dosage: CAPSULE, DELAYED RELEASE
     Route: 065
  24. LANSOPRAZOLE [Suspect]
     Active Substance: LANSOPRAZOLE
     Route: 065
  25. LANSOPRAZOLE [Suspect]
     Active Substance: LANSOPRAZOLE
     Dosage: 1 EVERY 0.5 DAYS
     Route: 048
  26. LANSOPRAZOLE [Suspect]
     Active Substance: LANSOPRAZOLE
     Route: 048
  27. LANSOPRAZOLE [Suspect]
     Active Substance: LANSOPRAZOLE
     Route: 048
  28. LINACLOTIDE [Suspect]
     Active Substance: LINACLOTIDE
     Indication: Irritable bowel syndrome
     Dosage: THERAPY DURATION: 892.0 DAYS
     Route: 048
  29. LINACLOTIDE [Suspect]
     Active Substance: LINACLOTIDE
     Route: 065
  30. POLYETHYLENE GLYCOL 3350 [Suspect]
     Active Substance: POLYETHYLENE GLYCOL 3350
     Indication: Product used for unknown indication
     Route: 065
  31. POLYETHYLENE GLYCOL 3350 [Suspect]
     Active Substance: POLYETHYLENE GLYCOL 3350
     Route: 048
  32. MELATONIN [Suspect]
     Active Substance: MELATONIN
     Indication: Product used for unknown indication
     Route: 060
  33. ONDANSETRON [Suspect]
     Active Substance: ONDANSETRON
     Indication: Product used for unknown indication
     Route: 060
  34. ONDANSETRON [Suspect]
     Active Substance: ONDANSETRON
     Route: 060
  35. POTASSIUM CHLORIDE [Suspect]
     Active Substance: POTASSIUM CHLORIDE
     Indication: Product used for unknown indication
     Route: 048
  36. POTASSIUM CHLORIDE [Suspect]
     Active Substance: POTASSIUM CHLORIDE
     Route: 048
  37. POTASSIUM CHLORIDE [Suspect]
     Active Substance: POTASSIUM CHLORIDE
     Route: 048
  38. POTASSIUM CHLORIDE [Suspect]
     Active Substance: POTASSIUM CHLORIDE
     Dosage: 1 EVERY 0.5 DAYS
     Route: 048
  39. PREMARIN [Suspect]
     Active Substance: ESTROGENS, CONJUGATED
     Indication: Product used for unknown indication
     Route: 067
  40. PREMARIN [Suspect]
     Active Substance: ESTROGENS, CONJUGATED
     Route: 065
  41. PREVACID [Suspect]
     Active Substance: LANSOPRAZOLE
     Indication: Product used for unknown indication
     Route: 048
  42. PREVACID [Suspect]
     Active Substance: LANSOPRAZOLE
     Dosage: 1 EVERY 0.5 DAYS
     Route: 048
  43. PREVACID [Suspect]
     Active Substance: LANSOPRAZOLE
     Dosage: 1 EVERY 0.5 DAYS
     Route: 065
  44. SODIUM CITRATE [Suspect]
     Active Substance: SODIUM CITRATE
     Indication: Product used for unknown indication
     Route: 065
  45. SODIUM CITRATE\SODIUM LAURYL SULFOACETATE [Suspect]
     Active Substance: SODIUM CITRATE\SODIUM LAURYL SULFOACETATE
     Indication: Product used for unknown indication
     Route: 065
  46. SODIUM CITRATE\SODIUM LAURYL SULFOACETATE [Suspect]
     Active Substance: SODIUM CITRATE\SODIUM LAURYL SULFOACETATE
     Route: 054
  47. SODIUM LAURYL SULFOACETATE [Suspect]
     Active Substance: SODIUM LAURYL SULFOACETATE
     Indication: Product used for unknown indication
     Route: 065
  48. SYNTHROID [Suspect]
     Active Substance: LEVOTHYROXINE SODIUM
     Indication: Product used for unknown indication
     Route: 048
  49. SYNTHROID [Suspect]
     Active Substance: LEVOTHYROXINE SODIUM
     Route: 065
  50. ZOFRAN [Suspect]
     Active Substance: ONDANSETRON HYDROCHLORIDE
     Indication: Product used for unknown indication
     Route: 065
  51. ZOFRAN [Suspect]
     Active Substance: ONDANSETRON HYDROCHLORIDE
     Route: 060

REACTIONS (1)
  - Cardiac arrest [Fatal]
